FAERS Safety Report 10149915 (Version 1)
Quarter: 2014Q2

REPORT INFORMATION
  Report Type: Spontaneous
  Country: GB (occurrence: GB)
  Receive Date: 20140502
  Receipt Date: 20140502
  Transmission Date: 20141212
  Serious: Yes (Other)
  Sender: FDA-Public Use
  Company Number: GB-TEVA-477156ISR

PATIENT
  Age: 81 Year
  Sex: Female
  Weight: 81 kg

DRUGS (12)
  1. NITROFURANTOIN [Suspect]
  2. ASPIRIN [Concomitant]
     Dates: start: 20131227, end: 20140321
  3. ATENOLOL [Concomitant]
     Dates: start: 20131227, end: 20140321
  4. BETNOVATE [Concomitant]
     Dates: start: 20140128, end: 20140225
  5. CANDESARTAN [Concomitant]
     Dates: start: 20131227, end: 20140321
  6. CLOPIDOGREL [Concomitant]
     Dates: start: 20131227, end: 20140321
  7. GLICLAZIDE [Concomitant]
     Dates: start: 20131227, end: 20140321
  8. LEVOTHYROXINE [Concomitant]
     Dates: start: 20131227, end: 20140321
  9. METFORMIN [Concomitant]
     Dates: start: 20131227, end: 20140321
  10. MOMETASONE [Concomitant]
     Dates: start: 20131218, end: 20140115
  11. OMEPRAZOLE [Concomitant]
     Dates: start: 20131227, end: 20140321
  12. SIMVASTATIN [Concomitant]
     Dates: start: 20131227, end: 20140321

REACTIONS (4)
  - Jaundice [Recovered/Resolved]
  - Tremor [Unknown]
  - Vomiting [Unknown]
  - Ocular icterus [Unknown]
